FAERS Safety Report 19159496 (Version 2)
Quarter: 2021Q2

REPORT INFORMATION
  Report Type: Spontaneous
  Country: AU (occurrence: AU)
  Receive Date: 20210420
  Receipt Date: 20210601
  Transmission Date: 20210717
  Serious: Yes (Other)
  Sender: FDA-Public Use
  Company Number: AU-MYLANLABS-2021M1023171

PATIENT
  Age: 23 Year
  Sex: Male

DRUGS (1)
  1. CLOZARIL [Suspect]
     Active Substance: CLOZAPINE
     Indication: SCHIZOPHRENIA
     Dosage: 425 MILLIGRAM
     Route: 048
     Dates: start: 20210119

REACTIONS (5)
  - Neutrophil count decreased [Unknown]
  - Benign ethnic neutropenia [Unknown]
  - Troponin increased [Unknown]
  - Therapy cessation [Recovered/Resolved]
  - Cardiac disorder [Unknown]

NARRATIVE: CASE EVENT DATE: 2021
